FAERS Safety Report 5590281-3 (Version None)
Quarter: 2008Q1

REPORT INFORMATION
  Report Type: 
  Country: None (occurrence: None)
  Receive Date: 20080114
  Receipt Date: 20080107
  Transmission Date: 20080703
  Serious: Yes (Hospitalization)
  Sender: FDA-Public Use
  Company Number: AU-ASTRAZENECA-2008AP00310

PATIENT
  Age: 26003 Day
  Sex: Male
  Weight: 102 kg

DRUGS (11)
  1. NEXIUM [Suspect]
     Route: 042
  2. AVANDIA [Concomitant]
     Dates: end: 20070329
  3. DIAFORMIN [Concomitant]
     Dates: end: 20070329
  4. DIMIREL [Concomitant]
     Dates: end: 20070329
  5. ATACAND HCT [Concomitant]
     Route: 048
  6. SERETIDE [Concomitant]
  7. SPIRIVA [Concomitant]
  8. LASIX [Concomitant]
  9. TRITACE [Concomitant]
  10. ZANIDIP [Concomitant]
  11. VENTOLIN [Concomitant]

REACTIONS (2)
  - ANAEMIA [None]
  - HYPOGLYCAEMIA [None]
